FAERS Safety Report 5234209-4 (Version None)
Quarter: 2007Q1

REPORT INFORMATION
  Report Type: 
  Country: None (occurrence: None)
  Receive Date: 20070207
  Receipt Date: 20070126
  Transmission Date: 20070707
  Serious: Yes (Life-Threatening, Hospitalization, Disabling)
  Sender: FDA-Public Use
  Company Number: 235120

PATIENT
  Age: 83 Year
  Sex: Female
  Weight: 81.6 kg

DRUGS (7)
  1. RAPTIVA [Suspect]
     Indication: PSORIASIS
     Dosage: 20 UNIT, 1 WEEK SUBCUTANEOUS
     Route: 058
     Dates: start: 20070111
  2. MEDICATION (UNK INGREDIENT) (GENERIC COMPONENT(S) NOT KNOWN [Concomitant]
  3. PREVACID [Concomitant]
  4. LASIX [Concomitant]
  5. SYNTHROID [Concomitant]
  6. POTASSIUM (POTASSIUM NOS) [Concomitant]
  7. METHOTREXATE [Concomitant]

REACTIONS (5)
  - CEREBROVASCULAR ACCIDENT [None]
  - DIZZINESS [None]
  - DYSPNOEA [None]
  - LETHARGY [None]
  - NAUSEA [None]
